FAERS Safety Report 10094024 (Version 1)
Quarter: 2014Q2

REPORT INFORMATION
  Report Type: Spontaneous
  Country: JP (occurrence: JP)
  Receive Date: 20140422
  Receipt Date: 20140422
  Transmission Date: 20141212
  Serious: Yes (Other)
  Sender: FDA-Public Use
  Company Number: JP-ROCHE-1383533

PATIENT
  Age: 71 Year
  Sex: Male

DRUGS (2)
  1. RANIBIZUMAB [Suspect]
     Indication: AGE-RELATED MACULAR DEGENERATION
     Dosage: 0.5 MG, 0.05 ML
     Route: 050
  2. TROPICAMIDE [Concomitant]

REACTIONS (4)
  - Visual acuity reduced [Unknown]
  - Detachment of retinal pigment epithelium [Unknown]
  - Retinal detachment [Unknown]
  - No therapeutic response [Unknown]
